FAERS Safety Report 5782715-6 (Version None)
Quarter: 2008Q2

REPORT INFORMATION
  Report Type: 
  Country: None (occurrence: None)
  Receive Date: 20080619
  Receipt Date: 20080619
  Transmission Date: 20081010
  Serious: Yes (Life-Threatening, Disabling)
  Sender: FDA-Public Use
  Company Number: None

PATIENT
  Age: 7 Year
  Sex: Male
  Weight: 29.4838 kg

DRUGS (3)
  1. SINGULAIR [Suspect]
     Indication: ASTHMA
     Dosage: 5MG DAILY PO
     Route: 048
     Dates: start: 20040101, end: 20060101
  2. PULMICORT-100 [Concomitant]
  3. XOPENEX [Concomitant]

REACTIONS (1)
  - SCHIZOPHRENIA [None]
